FAERS Safety Report 16228019 (Version 1)
Quarter: 2019Q2

REPORT INFORMATION
  Report Type: Spontaneous
  Country: US (occurrence: US)
  Receive Date: 20190423
  Receipt Date: 20190423
  Transmission Date: 20190711
  Serious: No
  Sender: FDA-Public Use
  Company Number: US-TEVA-2019-US-1034924

PATIENT
  Sex: Female

DRUGS (1)
  1. ESTRADIOL VAGINAL INSERT [Suspect]
     Active Substance: ESTRADIOL
     Dates: start: 20190321, end: 201903

REACTIONS (3)
  - Vulvovaginal swelling [Recovered/Resolved]
  - Reaction to excipient [Unknown]
  - Vulvovaginal pain [Recovered/Resolved]

NARRATIVE: CASE EVENT DATE: 2019
